FAERS Safety Report 22203934 (Version 10)
Quarter: 2024Q1

REPORT INFORMATION
  Report Type: Spontaneous
  Country: IN (occurrence: IN)
  Receive Date: 20230412
  Receipt Date: 20240304
  Transmission Date: 20240410
  Serious: Yes (Hospitalization, Other)
  Sender: FDA-Public Use
  Company Number: IN-PFIZER INC-PV202300065586

PATIENT
  Age: 64 Year
  Sex: Male

DRUGS (10)
  1. INOTUZUMAB OZOGAMICIN [Suspect]
     Active Substance: INOTUZUMAB OZOGAMICIN
     Indication: B-cell type acute leukaemia
     Dosage: 1 MG
     Route: 042
     Dates: start: 20220930
  2. INOTUZUMAB OZOGAMICIN [Suspect]
     Active Substance: INOTUZUMAB OZOGAMICIN
     Dosage: 0.6 MG
     Dates: start: 20221008
  3. INOTUZUMAB OZOGAMICIN [Suspect]
     Active Substance: INOTUZUMAB OZOGAMICIN
     Dosage: UNK
     Dates: start: 20221126
  4. INOTUZUMAB OZOGAMICIN [Suspect]
     Active Substance: INOTUZUMAB OZOGAMICIN
     Dosage: 1 MG
     Route: 042
     Dates: end: 202307
  5. VORICONAZOLE [Concomitant]
     Active Substance: VORICONAZOLE
     Dosage: 200MG TWICE DAILY TO CONTINUE
  6. VALACYCLOVIR HYDROCHLORIDE [Concomitant]
     Active Substance: VALACYCLOVIR HYDROCHLORIDE
     Dosage: 500MG ONCE A DAY ON MONDAY/WEDNESDAY/FRIDAY TO CONTINUE
  7. URSODIOL [Concomitant]
     Active Substance: URSODIOL
     Dosage: 300 MG THRICE DAILY TO CONTINUE
  8. CHLORHEXIDINE [Concomitant]
     Active Substance: CHLORHEXIDINE\CHLORHEXIDINE GLUCONATE
     Dosage: 3 TIMES A DAY TO CONTINUE
  9. LINAGLIPTIN\METFORMIN HYDROCHLORIDE [Concomitant]
     Active Substance: LINAGLIPTIN\METFORMIN HYDROCHLORIDE
     Dosage: 2.5/500 ONCE A DAY TO CONTINUE
  10. TELMA AM [Concomitant]
     Dosage: 5/40 TWICE A DAY TO CONTINUE

REACTIONS (16)
  - Febrile neutropenia [Unknown]
  - Oedema peripheral [Unknown]
  - Cyanosis [Unknown]
  - Chills [Unknown]
  - Haemoglobin decreased [Unknown]
  - White blood cell count decreased [Unknown]
  - Platelet count decreased [Unknown]
  - Myelosuppression [Unknown]
  - Thrombocytopenia [Unknown]
  - Cytopenia [Unknown]
  - Blood pressure increased [Unknown]
  - Body mass index increased [Unknown]
  - Tremor [Unknown]
  - Full blood count decreased [Unknown]
  - Pyrexia [Unknown]
  - Hepatic function abnormal [Unknown]

NARRATIVE: CASE EVENT DATE: 20221001
